FAERS Safety Report 7933057-1 (Version None)
Quarter: 2011Q4

REPORT INFORMATION
  Report Type: 
  Country: None (occurrence: None)
  Receive Date: 20111122
  Receipt Date: 20111117
  Transmission Date: 20120403
  Serious: Yes (Death)
  Sender: FDA-Public Use
  Company Number: US-AMGEN-USASP2011060887

PATIENT
  Sex: Female

DRUGS (10)
  1. DOCETAXEL [Concomitant]
     Indication: LUNG NEOPLASM MALIGNANT
  2. NEUPOGEN [Suspect]
     Indication: NEUTROPENIA
     Dosage: UNK MUG, UNK
     Dates: start: 20110201
  3. VINORELBINE [Concomitant]
     Indication: LUNG NEOPLASM MALIGNANT
  4. IRINOTECAN HCL [Concomitant]
     Indication: LUNG NEOPLASM MALIGNANT
  5. TAXOL [Concomitant]
     Indication: LUNG NEOPLASM MALIGNANT
  6. BEVACIZUMAB [Concomitant]
     Indication: LUNG NEOPLASM MALIGNANT
  7. PEMETREXED [Concomitant]
     Indication: LUNG NEOPLASM MALIGNANT
  8. ERLOTINIB HYDROCHLORIDE [Concomitant]
     Indication: LUNG NEOPLASM MALIGNANT
  9. CARBOPLATIN [Concomitant]
     Indication: LUNG NEOPLASM MALIGNANT
  10. GEMCITABINE [Concomitant]
     Indication: LUNG NEOPLASM MALIGNANT

REACTIONS (1)
  - LUNG NEOPLASM MALIGNANT [None]
